FAERS Safety Report 6062453-5 (Version None)
Quarter: 2009Q1

REPORT INFORMATION
  Report Type: 
  Country: None (occurrence: None)
  Receive Date: 20090203
  Receipt Date: 20090112
  Transmission Date: 20090719
  Serious: No
  Sender: FDA-Public Use
  Company Number: US-BAYER-200910782NA

PATIENT
  Age: 29 Year
  Sex: Female
  Weight: 59 kg

DRUGS (3)
  1. MIRENA [Suspect]
     Indication: CONTRACEPTION
     Route: 015
     Dates: start: 20081001
  2. EFFEXOR [Concomitant]
  3. SUBOXONE [Concomitant]

REACTIONS (1)
  - PREGNANCY WITH CONTRACEPTIVE DEVICE [None]
